FAERS Safety Report 22129691 (Version 1)
Quarter: 2023Q1

REPORT INFORMATION
  Report Type: Spontaneous
  Country: US (occurrence: None)
  Receive Date: 20230322
  Receipt Date: 20230322
  Transmission Date: 20230417
  Serious: No
  Sender: FDA-Public Use
  Company Number: None

PATIENT
  Age: 51 Year
  Sex: Female
  Weight: 87.75 kg

DRUGS (4)
  1. CANNABIDIOL [Suspect]
     Active Substance: CANNABIDIOL
     Indication: Insomnia
     Dosage: OTHER QUANTITY : 1 GUMMY;?FREQUENCY : AT BEDTIME;?
     Route: 048
  2. VITAMIN D3 [Concomitant]
     Active Substance: CHOLECALCIFEROL
  3. VITAMINS [Concomitant]
     Active Substance: VITAMINS
  4. FISH OIL [Concomitant]
     Active Substance: FISH OIL

REACTIONS (16)
  - Product colour issue [None]
  - Product shape issue [None]
  - Depressed level of consciousness [None]
  - Paraesthesia [None]
  - Hallucination [None]
  - Feeling drunk [None]
  - Hypokinesia [None]
  - Aphasia [None]
  - Sensory disturbance [None]
  - Pain [None]
  - Somnolence [None]
  - Dysgeusia [None]
  - Disturbance in attention [None]
  - Hypoaesthesia [None]
  - Product complaint [None]
  - Product formulation issue [None]

NARRATIVE: CASE EVENT DATE: 20230321
